FAERS Safety Report 15376392 (Version 1)
Quarter: 2018Q3

REPORT INFORMATION
  Report Type: Spontaneous
  Country: US (occurrence: US)
  Receive Date: 20180912
  Receipt Date: 20180912
  Transmission Date: 20181010
  Serious: Yes (Other)
  Sender: FDA-Public Use
  Company Number: PHHY2018US091022

PATIENT

DRUGS (1)
  1. IMATINIB [Suspect]
     Active Substance: IMATINIB
     Indication: OVARIAN CANCER
     Dosage: 600 MG, QD
     Route: 048

REACTIONS (2)
  - Rectal haemorrhage [Unknown]
  - Product use in unapproved indication [Unknown]
